FAERS Safety Report 7447768-8 (Version None)
Quarter: 2011Q2

REPORT INFORMATION
  Report Type: 
  Country: None (occurrence: None)
  Receive Date: 20110429
  Receipt Date: 20100816
  Transmission Date: 20111010
  Serious: No
  Sender: FDA-Public Use
  Company Number: US-ASTRAZENECA-2010SE38378

PATIENT
  Sex: Female

DRUGS (4)
  1. NEXIUM [Suspect]
     Route: 048
  2. TOPAMAX [Concomitant]
  3. VIVELLE-DOT [Concomitant]
     Indication: HORMONE THERAPY
  4. MAXALT [Concomitant]
     Indication: MIGRAINE

REACTIONS (3)
  - MALAISE [None]
  - MIGRAINE [None]
  - DRUG DOSE OMISSION [None]
